FAERS Safety Report 7890202-4 (Version None)
Quarter: 2011Q4

REPORT INFORMATION
  Report Type: 
  Country: None (occurrence: None)
  Receive Date: 20111103
  Receipt Date: 20110728
  Transmission Date: 20120403
  Serious: No
  Sender: FDA-Public Use
  Company Number: US-AMGEN-USASP2011024222

PATIENT
  Age: 31 Year
  Sex: Female

DRUGS (1)
  1. ENBREL [Suspect]
     Indication: PSORIASIS
     Dosage: 50 MG, 2 TIMES/WK
     Dates: start: 20110425

REACTIONS (9)
  - INJECTION SITE HAEMATOMA [None]
  - PYREXIA [None]
  - VOMITING [None]
  - BACK PAIN [None]
  - INJECTION SITE WARMTH [None]
  - COUGH [None]
  - INJECTION SITE URTICARIA [None]
  - INJECTION SITE ERYTHEMA [None]
  - ABDOMINAL PAIN UPPER [None]
